FAERS Safety Report 7864403-5 (Version None)
Quarter: 2011Q4

REPORT INFORMATION
  Report Type: 
  Country: None (occurrence: None)
  Receive Date: 20111028
  Receipt Date: 20111018
  Transmission Date: 20120403
  Serious: Yes (Other)
  Sender: FDA-Public Use
  Company Number: PHEH2011US07225

PATIENT
  Sex: Female

DRUGS (3)
  1. CHEMOTHERAPEUTICS [Suspect]
     Indication: NEOPLASM MALIGNANT
  2. FEMARA [Suspect]
     Dosage: ONCE A DAY
  3. LEXAPRO [Concomitant]

REACTIONS (2)
  - HEARING IMPAIRED [None]
  - NERVE INJURY [None]
